FAERS Safety Report 7434343-4 (Version None)
Quarter: 2011Q2

REPORT INFORMATION
  Report Type: 
  Country: None (occurrence: None)
  Receive Date: 20110420
  Receipt Date: 20110420
  Transmission Date: 20111010
  Serious: Yes (Hospitalization)
  Sender: FDA-Public Use
  Company Number: None

PATIENT
  Sex: Female
  Weight: 78.8 kg

DRUGS (6)
  1. CYCLOPHOSPHAMIDE [Suspect]
     Dosage: 2100 MG
  2. ETOPOSIDE [Suspect]
     Dosage: 560 MG
  3. DOXORUBICIN HCL [Suspect]
     Dosage: 112 MG
  4. PREDNISONE [Suspect]
     Dosage: 1200 MG
  5. RITUXIMAB (MOAB C2B8 ANTI CD20, CHIMERIC) [Suspect]
     Dosage: 730 MG
  6. VINCRISTINE SULFATE [Suspect]
     Dosage: 3.2 MG

REACTIONS (5)
  - PYREXIA [None]
  - MUCOSAL INFLAMMATION [None]
  - NEUTROPENIA [None]
  - STAPHYLOCOCCUS TEST POSITIVE [None]
  - CLOSTRIDIUM TEST POSITIVE [None]
